FAERS Safety Report 8248815-6 (Version None)
Quarter: 2012Q2

REPORT INFORMATION
  Report Type: 
  Country: None (occurrence: None)
  Receive Date: 20120401
  Receipt Date: 20120323
  Transmission Date: 20120825
  Serious: Yes (Other)
  Sender: FDA-Public Use
  Company Number: PHHY2012ES025677

PATIENT
  Age: 53 Year
  Sex: Male

DRUGS (2)
  1. RIBAVIRIN [Suspect]
     Indication: ANTIVIRAL TREATMENT
     Dosage: 1200 MG, UNK
  2. INTERFERON [Suspect]
     Indication: ANTIVIRAL TREATMENT
     Dosage: 180 MCG

REACTIONS (9)
  - ABNORMAL BEHAVIOUR [None]
  - DELUSIONAL DISORDER, EROTOMANIC TYPE [None]
  - DISINHIBITION [None]
  - ANXIETY [None]
  - ANGER [None]
  - DEPRESSION [None]
  - INSOMNIA [None]
  - IRRITABILITY [None]
  - NERVOUSNESS [None]
